FAERS Safety Report 18706236 (Version 3)
Quarter: 2021Q1

REPORT INFORMATION
  Report Type: Spontaneous
  Country: US (occurrence: US)
  Receive Date: 20210106
  Receipt Date: 20210204
  Transmission Date: 20210419
  Serious: No
  Sender: FDA-Public Use
  Company Number: US-ASTRAZENECA-2020SF74466

PATIENT
  Age: 66 Year
  Sex: Male
  Weight: 127 kg

DRUGS (2)
  1. BYDUREON BCISE [Suspect]
     Active Substance: EXENATIDE
     Indication: TYPE 2 DIABETES MELLITUS
     Route: 065
  2. METFORMIN [Concomitant]
     Active Substance: METFORMIN HYDROCHLORIDE
     Indication: TYPE 2 DIABETES MELLITUS

REACTIONS (5)
  - Incorrect dose administered by device [Unknown]
  - Device use issue [Unknown]
  - Injection site extravasation [Unknown]
  - Blood glucose increased [Unknown]
  - Device mechanical issue [Unknown]
